FAERS Safety Report 25299007 (Version 2)
Quarter: 2025Q2

REPORT INFORMATION
  Report Type: Report from Study
  Country: US (occurrence: US)
  Receive Date: 20250512
  Receipt Date: 20250606
  Transmission Date: 20250716
  Serious: Yes (Other)
  Sender: ALEXION PHARMACEUTICALS
  Company Number: US-AstraZeneca-CH-00863777A

PATIENT

DRUGS (1)
  1. ULTOMIRIS [Suspect]
     Active Substance: RAVULIZUMAB-CWVZ
     Indication: Myasthenia gravis
     Route: 065

REACTIONS (11)
  - Myasthenia gravis [Unknown]
  - Therapeutic response shortened [Unknown]
  - Blood iron decreased [Unknown]
  - Asthenia [Unknown]
  - Fine motor skill dysfunction [Unknown]
  - Dysphagia [Unknown]
  - Diplopia [Not Recovered/Not Resolved]
  - Balance disorder [Unknown]
  - Muscular weakness [Unknown]
  - Dyspnoea [Unknown]
  - Sleep apnoea syndrome [Unknown]
